FAERS Safety Report 9688394 (Version 1)
Quarter: 2013Q4

REPORT INFORMATION
  Report Type: Spontaneous
  Country: US (occurrence: None)
  Receive Date: 20131112
  Receipt Date: 20131112
  Transmission Date: 20140711
  Serious: Yes (Life-Threatening, Hospitalization)
  Sender: FDA-Public Use
  Company Number: 2013US002785

PATIENT
  Age: 52 Year
  Sex: Female
  Weight: 67 kg

DRUGS (4)
  1. ICLUSIG (PONATINIB) [Suspect]
     Indication: CHRONIC MYELOID LEUKAEMIA
     Route: 048
  2. ACYCLOVIR (ACYCLOVIR) [Suspect]
  3. LISINOPRIL (LISINOPRIL) [Suspect]
  4. CARVEDILOL (CARVEDILOL) [Suspect]

REACTIONS (7)
  - Respiratory distress [None]
  - Hypotension [None]
  - Laboratory test abnormal [None]
  - Sepsis [None]
  - Pneumonia [None]
  - Cardiac failure congestive [None]
  - Pyrexia [None]
